FAERS Safety Report 19249544 (Version 4)
Quarter: 2022Q1

REPORT INFORMATION
  Report Type: Report from Study
  Country: US (occurrence: US)
  Receive Date: 20210512
  Receipt Date: 20220217
  Transmission Date: 20220423
  Serious: Yes (Death, Hospitalization, Other)
  Sender: FDA-Public Use
  Company Number: US-BOEHRINGERINGELHEIM-2021-BI-078230

PATIENT
  Age: 63 Year
  Sex: Male

DRUGS (14)
  1. OFEV [Suspect]
     Active Substance: NINTEDANIB
     Indication: Interstitial lung disease
     Route: 048
     Dates: start: 20201228, end: 20210831
  2. OFEV [Suspect]
     Active Substance: NINTEDANIB
  3. CHOLESTYRAM POW [Concomitant]
     Indication: Product used for unknown indication
  4. CLONAZEPAM [Concomitant]
     Active Substance: CLONAZEPAM
     Indication: Product used for unknown indication
  5. ESCITALOPRAM [Concomitant]
     Active Substance: ESCITALOPRAM OXALATE
     Indication: Product used for unknown indication
  6. MIDODRINE [Concomitant]
     Active Substance: MIDODRINE
     Indication: Product used for unknown indication
  7. OFLOXACIN DRP [Concomitant]
     Indication: Product used for unknown indication
  8. PANTOPRAZOLE [Concomitant]
     Active Substance: PANTOPRAZOLE
     Indication: Product used for unknown indication
  9. SYNTHROID [Concomitant]
     Active Substance: LEVOTHYROXINE SODIUM
     Indication: Product used for unknown indication
  10. VENTOLIN HFA AER [Concomitant]
     Indication: Product used for unknown indication
  11. ALBUTEROL AER HFA [Concomitant]
     Indication: Product used for unknown indication
  12. BENZONATATE [Concomitant]
     Active Substance: BENZONATATE
     Indication: Product used for unknown indication
  13. FLUTICASONE SPR [Concomitant]
     Indication: Product used for unknown indication
  14. MYCOPHENOLATE MOFETIL [Concomitant]
     Active Substance: MYCOPHENOLATE MOFETIL
     Indication: Product used for unknown indication

REACTIONS (14)
  - Death [Fatal]
  - Diarrhoea [Not Recovered/Not Resolved]
  - Vomiting [Not Recovered/Not Resolved]
  - Dizziness [Not Recovered/Not Resolved]
  - Abdominal pain upper [Not Recovered/Not Resolved]
  - Dehydration [Recovered/Resolved]
  - Dehydration [Not Recovered/Not Resolved]
  - Blood sodium decreased [Not Recovered/Not Resolved]
  - Decreased appetite [Not Recovered/Not Resolved]
  - Rash [Not Recovered/Not Resolved]
  - Nasal congestion [Not Recovered/Not Resolved]
  - Rhinorrhoea [Not Recovered/Not Resolved]
  - Weight decreased [Not Recovered/Not Resolved]
  - Chest pain [Not Recovered/Not Resolved]

NARRATIVE: CASE EVENT DATE: 20200101
